FAERS Safety Report 11330286 (Version 2)
Quarter: 2018Q1

REPORT INFORMATION
  Report Type: Spontaneous
  Country: US (occurrence: US)
  Receive Date: 20150803
  Receipt Date: 20180222
  Transmission Date: 20180508
  Serious: Yes (Other)
  Sender: FDA-Public Use
  Company Number: US-PFIZER INC-2015255144

PATIENT
  Age: 70 Year
  Sex: Female
  Weight: 71.67 kg

DRUGS (9)
  1. SIMVASTATIN. [Concomitant]
     Active Substance: SIMVASTATIN
     Indication: BLOOD CHOLESTEROL INCREASED
     Dosage: 20 MG, 1X/DAY
     Route: 048
  2. TYLENOL [Concomitant]
     Active Substance: ACETAMINOPHEN
     Indication: HEADACHE
     Dosage: 500 MG, AS NEEDED
     Route: 048
  3. BISOPROLOL-HYDROCHLOROTHIAZIDE [Concomitant]
     Active Substance: BISOPROLOL FUMARATE\HYDROCHLOROTHIAZIDE
     Indication: HYPERTENSION
     Dosage: [BISOPROLOL 5MG]/[HYDROCHLOROTHIAZIDE 6.25MG], 1X/DAY
     Route: 048
  4. VITAMIN D [Concomitant]
     Active Substance: CHOLECALCIFEROL
     Indication: VITAMIN D DECREASED
     Dosage: 2000 MG, 1X/DAY
     Route: 048
  5. LYRICA [Suspect]
     Active Substance: PREGABALIN
     Indication: NEURALGIA
     Dosage: 75 MG, 2X/DAY (ONE IN THE MORNING AND ONE IN THE EVENING)
     Route: 048
  6. LYRICA [Suspect]
     Active Substance: PREGABALIN
     Indication: SYSTEMIC LUPUS ERYTHEMATOSUS
     Dosage: 75 MG, 3X/DAY (ONE IN THE MORNING AND TWO AT NIGHT
     Route: 048
  7. LYRICA [Suspect]
     Active Substance: PREGABALIN
     Indication: HAEMORRHAGIC STROKE
     Dosage: 75 MG, 1X/DAY
     Route: 048
  8. LYRICA [Suspect]
     Active Substance: PREGABALIN
     Indication: TRIGEMINAL NEURALGIA
     Dosage: 75 MG, 2X/DAY (ONE IN THE MORNING AND ONE IN THE EVENING)
     Route: 048
  9. TRAMADOL. [Concomitant]
     Active Substance: TRAMADOL
     Indication: PAIN
     Dosage: 50 MG, 2X/DAY, AS NEEDED
     Route: 048

REACTIONS (15)
  - Hypoaesthesia [Unknown]
  - Urticaria [Unknown]
  - Headache [Unknown]
  - Dry eye [Unknown]
  - Product use in unapproved indication [Unknown]
  - Rheumatic disorder [Unknown]
  - Feeling abnormal [Unknown]
  - Arthralgia [Unknown]
  - Post procedural complication [Unknown]
  - Anger [Unknown]
  - Facial pain [Unknown]
  - Gait disturbance [Unknown]
  - Toothache [Unknown]
  - Thinking abnormal [Unknown]
  - Weight increased [Unknown]
